FAERS Safety Report 6397687-3 (Version None)
Quarter: 2009Q4

REPORT INFORMATION
  Report Type: 
  Country: None (occurrence: None)
  Receive Date: 20091012
  Receipt Date: 20091005
  Transmission Date: 20100525
  Serious: Yes (Other)
  Sender: FDA-Public Use
  Company Number: ES-PFIZER INC-2009279310

PATIENT
  Age: 30 Year

DRUGS (2)
  1. HYDROXYZINE HCL [Suspect]
     Indication: URTICARIA
     Dosage: 25 MG, UNK
  2. DEXCHLORPHENIRAMINE [Suspect]
     Indication: URTICARIA
     Dosage: 5 MG, UNK

REACTIONS (1)
  - URTICARIA [None]
